FAERS Safety Report 11951413 (Version 1)
Quarter: 2016Q1

REPORT INFORMATION
  Report Type: Spontaneous
  Country: US (occurrence: None)
  Receive Date: 20160122
  Receipt Date: 20160122
  Transmission Date: 20160526
  Serious: Yes (Hospitalization)
  Sender: FDA-Public Use
  Company Number: None

PATIENT
  Age: 56 Year
  Sex: Male
  Weight: 79.65 kg

DRUGS (3)
  1. KYPROLIS [Suspect]
     Active Substance: CARFILZOMIB
     Indication: PLASMA CELL MYELOMA
     Dosage: 56MG/M2 6DAYS Q 28DAYS IV
     Route: 042
     Dates: start: 20151215, end: 20160101
  2. PEGYLATED LIPOSOMAL DOXORUBICIN [Concomitant]
     Active Substance: DOXORUBICIN
  3. DEXAMETHASONE. [Concomitant]
     Active Substance: DEXAMETHASONE

REACTIONS (4)
  - Human rhinovirus test positive [None]
  - Unresponsive to stimuli [None]
  - Respiratory failure [None]
  - Enterovirus test positive [None]

NARRATIVE: CASE EVENT DATE: 20160110
